FAERS Safety Report 10339212 (Version 1)
Quarter: 2014Q3

REPORT INFORMATION
  Report Type: Spontaneous
  Country: US (occurrence: None)
  Receive Date: 20140722
  Receipt Date: 20140722
  Transmission Date: 20150326
  Serious: Yes (Other)
  Sender: FDA-Public Use
  Company Number: None

PATIENT
  Age: 45 Year
  Sex: Female
  Weight: 95.6 kg

DRUGS (1)
  1. BRENTUXIMAB VEDOTIN [Suspect]
     Active Substance: BRENTUXIMAB VEDOTIN
     Indication: ACUTE GRAFT VERSUS HOST DISEASE
     Dosage: THERAPY DATES: 5/14/14; 5/28/14; 6/18/14, 0.6 MG/KG Q2WEEKS, IV
     Route: 042

REACTIONS (5)
  - Abdominal distension [None]
  - Ileus [None]
  - Abdominal pain [None]
  - Small intestinal obstruction [None]
  - Nausea [None]

NARRATIVE: CASE EVENT DATE: 20140627
